FAERS Safety Report 9061432 (Version 1)
Quarter: 2013Q1

REPORT INFORMATION
  Report Type: Spontaneous
  Country: ES (occurrence: ES)
  Receive Date: 20130204
  Receipt Date: 20130204
  Transmission Date: 20140127
  Serious: Yes (Hospitalization)
  Sender: FDA-Public Use
  Company Number: ES-ELI_LILLY_AND_COMPANY-ES201301007756

PATIENT
  Sex: Female
  Weight: 78 kg

DRUGS (5)
  1. FORSTEO [Suspect]
     Indication: OSTEOPOROSIS
     Dosage: 20 UG, QD
     Route: 058
     Dates: start: 20110715, end: 201210
  2. OMEPRAZOLE [Concomitant]
     Indication: PROPHYLAXIS
     Dosage: UNK, QD
     Route: 048
  3. DOXAZOCIN [Concomitant]
     Dosage: UNK, QD
     Route: 048
  4. ADIRO [Concomitant]
     Indication: PROPHYLAXIS
     Dosage: UNK, QD
     Route: 048
  5. SIMVASTATINA [Concomitant]
     Indication: BLOOD CHOLESTEROL
     Dosage: UNK, EACH EVENING
     Route: 048

REACTIONS (1)
  - Angina pectoris [Recovered/Resolved]
